FAERS Safety Report 5290161-7 (Version None)
Quarter: 2007Q1

REPORT INFORMATION
  Report Type: 
  Country: None (occurrence: None)
  Receive Date: 20070330
  Receipt Date: 20070320
  Transmission Date: 20070707
  Serious: Yes (Disabling, Other)
  Sender: FDA-Public Use
  Company Number: 07032058

PATIENT
  Age: 30 Year
  Sex: Female

DRUGS (2)
  1. CARBAMAZEPINE [Suspect]
     Indication: EPILEPSY
     Dosage: 200MG, BID, ORAL
     Route: 048
  2. CLARITHROMYCIN [Suspect]
     Indication: SINUSITIS
     Dosage: 500MG, BID, ORAL
     Route: 048

REACTIONS (5)
  - BALANCE DISORDER [None]
  - DIZZINESS [None]
  - HYPONATRAEMIA [None]
  - LETHARGY [None]
  - SINUSITIS [None]
